APPROVED DRUG PRODUCT: AMLODIPINE BESYLATE
Active Ingredient: AMLODIPINE BESYLATE
Strength: EQ 10MG BASE
Dosage Form/Route: TABLET;ORAL
Application: A078021 | Product #003 | TE Code: AB
Applicant: AUROBINDO PHARMA LTD
Approved: Jul 17, 2007 | RLD: No | RS: No | Type: RX